FAERS Safety Report 5670159-7 (Version None)
Quarter: 2008Q1

REPORT INFORMATION
  Report Type: 
  Country: None (occurrence: None)
  Receive Date: 20080312
  Receipt Date: 20080229
  Transmission Date: 20080703
  Serious: Yes (Death)
  Sender: FDA-Public Use
  Company Number: 2008AL001261

PATIENT
  Age: 48 Year
  Sex: Male

DRUGS (4)
  1. PROPRANOLOL HCL [Suspect]
     Indication: PALPITATIONS
     Dosage: 40 MG; BID
     Dates: start: 20060301
  2. GLIBENCLAMIDE [Concomitant]
  3. METFORMIN [Concomitant]
  4. PHENTERMINE [Concomitant]

REACTIONS (15)
  - CARDIAC ARREST [None]
  - CARDIOMEGALY [None]
  - CIRCULATORY COLLAPSE [None]
  - DYSPNOEA [None]
  - EJECTION FRACTION DECREASED [None]
  - GOITRE [None]
  - HEPATITIS [None]
  - HYPERTHYROIDISM [None]
  - HYPOTENSION [None]
  - MULTI-ORGAN FAILURE [None]
  - RENAL FAILURE ACUTE [None]
  - SINUS BRADYCARDIA [None]
  - TACHYPNOEA [None]
  - THYROTOXIC CRISIS [None]
  - UNRESPONSIVE TO STIMULI [None]
